FAERS Safety Report 5476321-0 (Version None)
Quarter: 2007Q4

REPORT INFORMATION
  Report Type: 
  Country: None (occurrence: None)
  Receive Date: 20071003
  Receipt Date: 20070921
  Transmission Date: 20080405
  Serious: Yes (Other)
  Sender: FDA-Public Use
  Company Number: FR-PFIZER INC-2007060736

PATIENT
  Sex: Female
  Weight: 76 kg

DRUGS (4)
  1. LYRICA [Suspect]
     Indication: NEURALGIA
     Route: 048
     Dates: start: 20070423, end: 20070427
  2. ART 50 [Suspect]
     Indication: OSTEOARTHRITIS
     Route: 048
     Dates: start: 20070423, end: 20070427
  3. AMLODIPINE [Concomitant]
     Route: 048
  4. ATORVASTATIN CALCIUM [Concomitant]
     Route: 048

REACTIONS (3)
  - ANURIA [None]
  - CHROMATURIA [None]
  - OEDEMA PERIPHERAL [None]
